APPROVED DRUG PRODUCT: FENOFIBRATE (MICRONIZED)
Active Ingredient: FENOFIBRATE
Strength: 43MG
Dosage Form/Route: CAPSULE;ORAL
Application: A202252 | Product #001 | TE Code: AB
Applicant: APOTEX INC
Approved: Jul 26, 2013 | RLD: No | RS: No | Type: RX